FAERS Safety Report 24755098 (Version 1)
Quarter: 2024Q4

REPORT INFORMATION
  Report Type: Spontaneous
  Country: US (occurrence: US)
  Receive Date: 20241219
  Receipt Date: 20241219
  Transmission Date: 20250114
  Serious: No
  Sender: STALLERGENES
  Company Number: US-STALCOR-2024-AER-02961

PATIENT
  Age: 35 Year
  Sex: Female
  Weight: 120.2 kg

DRUGS (13)
  1. PECAN [Suspect]
     Active Substance: PECAN
     Indication: Rhinitis allergic
     Route: 058
  2. ALLERGENIC EXTRACT- GRASS [Suspect]
     Active Substance: ALLERGENIC EXTRACT- GRASS
     Indication: Rhinitis allergic
     Route: 058
  3. NUMBER THREE WEED MIXTURE [Suspect]
     Active Substance: AMARANTHUS RETROFLEXUS POLLEN\BASSIA SCOPARIA POLLEN\CHENOPODIUM ALBUM POLLEN\RUMEX ACETOSELLA POLLE
     Indication: Rhinitis allergic
     Route: 058
  4. RAGWEED MIXTURE [Suspect]
     Active Substance: AMBROSIA ARTEMISIIFOLIA POLLEN\AMBROSIA BIDENTATA POLLEN\AMBROSIA PSILOSTACHYA POLLEN\AMBROSIA TRIFI
     Indication: Rhinitis allergic
     Route: 058
  5. DERMATOPHAGOIDES FARINAE\DERMATOPHAGOIDES PTERONYSSINUS [Suspect]
     Active Substance: DERMATOPHAGOIDES FARINAE\DERMATOPHAGOIDES PTERONYSSINUS
     Indication: Rhinitis allergic
     Route: 058
  6. ALLERGENIC EXTRACT- COCKROACH PERIPLANETA AMERICANA [Suspect]
     Active Substance: ALLERGENIC EXTRACT- COCKROACH PERIPLANETA AMERICANA
     Indication: Rhinitis allergic
     Route: 058
  7. CAT HAIR [Suspect]
     Active Substance: FELIS CATUS HAIR
     Indication: Rhinitis allergic
     Route: 058
  8. DOG EPITHELIA [Suspect]
     Active Substance: CANIS LUPUS FAMILIARIS SKIN
     Indication: Rhinitis allergic
     Route: 058
  9. STERILE DILUENT FOR ALLERGENIC EXTRACT (ALBUMIN (HUMAN)\PHENOL) [Suspect]
     Active Substance: ALBUMIN HUMAN\PHENOL
     Indication: Rhinitis allergic
     Route: 058
  10. STERILE DILUENT FOR ALLERGENIC EXTRACT (ALBUMIN (HUMAN)\PHENOL) [Suspect]
     Active Substance: ALBUMIN HUMAN\PHENOL
     Route: 058
  11. MOLD MIX 3 [Suspect]
     Active Substance: ALTERNARIA ALTERNATA\ASPERGILLUS NIGER VAR. NIGER\CLADOSPORIUM SPHAEROSPERMUM\PENICILLIUM CHRYSOGENU
     Indication: Rhinitis allergic
     Route: 058
  12. POLLENS - TREES, TREE MIX 11 [Suspect]
     Active Substance: ACER SACCHARUM POLLEN\BETULA NIGRA POLLEN\CARYA OVATA POLLEN\FAGUS GRANDIFOLIA POLLEN\FRAXINUS AMERI
     Indication: Rhinitis allergic
     Route: 058
  13. FLONASE [Concomitant]
     Active Substance: FLUTICASONE PROPIONATE
     Indication: Product used for unknown indication

REACTIONS (3)
  - Wheezing [Recovered/Resolved]
  - Pruritus [Recovered/Resolved]
  - Ear pruritus [Recovered/Resolved]

NARRATIVE: CASE EVENT DATE: 20240725
